FAERS Safety Report 6874329-1 (Version None)
Quarter: 2010Q3

REPORT INFORMATION
  Report Type: 
  Country: None (occurrence: None)
  Receive Date: 20100723
  Receipt Date: 20090504
  Transmission Date: 20110219
  Serious: No
  Sender: FDA-Public Use
  Company Number: US-PFIZER INC-2009188828

PATIENT
  Sex: Female
  Weight: 58.967 kg

DRUGS (2)
  1. CHANTIX [Suspect]
     Indication: SMOKING CESSATION THERAPY
     Dosage: 1 MG, 2X/DAY
     Dates: start: 20080701
  2. PROZAC [Concomitant]
     Indication: BIPOLAR DISORDER

REACTIONS (3)
  - AMNESIA [None]
  - NASOPHARYNGITIS [None]
  - RESPIRATORY DISORDER [None]
